FAERS Safety Report 14281860 (Version 3)
Quarter: 2018Q1

REPORT INFORMATION
  Report Type: Spontaneous
  Country: US (occurrence: US)
  Receive Date: 20171213
  Receipt Date: 20180222
  Transmission Date: 20180508
  Serious: No
  Sender: FDA-Public Use
  Company Number: US-PFIZER INC-2017530041

PATIENT
  Age: 76 Year
  Sex: Male
  Weight: 70.75 kg

DRUGS (2)
  1. DILANTIN [Suspect]
     Active Substance: PHENYTOIN
     Dosage: 500 MG, ONCE WEEKLY ON WEDNESDAY (TWO 100MG CAPS IN THE MORNING AND THREE 100MG CAPS AT NIGHT)
     Dates: start: 1977
  2. DILANTIN [Suspect]
     Active Substance: PHENYTOIN
     Indication: SEIZURE
     Dosage: 200 MG, 2X/DAY 6 DAYS A WEEK (TWO 100MG CAPSULES IN THE MORNING AND TWO 100MG CAPSULES AT NIGHT)
     Dates: start: 1977

REACTIONS (2)
  - Anticonvulsant drug level above therapeutic [Unknown]
  - Blood glucose increased [Unknown]
